FAERS Safety Report 25727893 (Version 1)
Quarter: 2025Q3

REPORT INFORMATION
  Report Type: Spontaneous
  Country: US (occurrence: None)
  Receive Date: 20250826
  Receipt Date: 20250826
  Transmission Date: 20251020
  Serious: Yes (Death)
  Sender: FDA-CTU
  Company Number: None

PATIENT
  Sex: Male

DRUGS (1)
  1. ROCEPHIN [Suspect]
     Active Substance: CEFTRIAXONE SODIUM

REACTIONS (4)
  - Drug hypersensitivity [None]
  - Vision blurred [None]
  - Incoherent [None]
  - Cardio-respiratory arrest [None]

NARRATIVE: CASE EVENT DATE: 20240226
